FAERS Safety Report 14413680 (Version 1)
Quarter: 2018Q1

REPORT INFORMATION
  Report Type: Report from Study
  Country: US (occurrence: US)
  Receive Date: 20180119
  Receipt Date: 20180119
  Transmission Date: 20180509
  Serious: Yes (Hospitalization, Other)
  Sender: FDA-Public Use
  Company Number: US-GILEAD-2018-0316075

PATIENT
  Age: 53 Year
  Sex: Male

DRUGS (1)
  1. AZTREONAM LYSINE [Suspect]
     Active Substance: AZTREONAM LYSINE
     Indication: CYSTIC FIBROSIS
     Dosage: 75 MG, TID
     Route: 055
     Dates: start: 201707

REACTIONS (5)
  - Pericardial effusion [Unknown]
  - Throat irritation [Unknown]
  - Pleural effusion [Unknown]
  - Dry mouth [Unknown]
  - Oedema peripheral [Unknown]
